FAERS Safety Report 25007565 (Version 1)
Quarter: 2025Q1

REPORT INFORMATION
  Report Type: Spontaneous
  Country: US (occurrence: US)
  Receive Date: 20250225
  Receipt Date: 20250225
  Transmission Date: 20250408
  Serious: No
  Sender: TEVA
  Company Number: US-TEVA-VS-3295317

PATIENT
  Sex: Female

DRUGS (1)
  1. COPAXONE [Suspect]
     Active Substance: GLATIRAMER ACETATE
     Indication: Multiple sclerosis
     Route: 065
     Dates: start: 2007

REACTIONS (6)
  - Influenza [Unknown]
  - Feeling abnormal [Unknown]
  - Confusional state [Unknown]
  - Body temperature increased [Unknown]
  - Inappropriate schedule of product administration [Unknown]
  - Tinnitus [Unknown]
